FAERS Safety Report 17134564 (Version 1)
Quarter: 2019Q4

REPORT INFORMATION
  Report Type: Spontaneous
  Country: US (occurrence: US)
  Receive Date: 20191118
  Receipt Date: 20191118
  Transmission Date: 20200122
  Serious: Yes (Hospitalization)
  Sender: FDA-Public Use
  Company Number: None

PATIENT
  Age: 58 Year
  Sex: Male
  Weight: 30.35 kg

DRUGS (1)
  1. CARBOPLATIN 10MG/ML [Suspect]
     Active Substance: CARBOPLATIN
     Indication: LUNG NEOPLASM MALIGNANT
     Route: 042

REACTIONS (4)
  - Nausea [None]
  - Chest pain [None]
  - Dizziness [None]
  - Dyspnoea [None]

NARRATIVE: CASE EVENT DATE: 20191029
